FAERS Safety Report 7221939-8 (Version None)
Quarter: 2011Q1

REPORT INFORMATION
  Report Type: 
  Country: None (occurrence: None)
  Receive Date: 20110112
  Receipt Date: 20110109
  Transmission Date: 20110831
  Serious: Yes (Hospitalization)
  Sender: FDA-Public Use
  Company Number: B0641327A

PATIENT
  Age: 29 Year
  Sex: Female

DRUGS (4)
  1. REYATAZ [Suspect]
     Indication: ANTIRETROVIRAL THERAPY
     Dosage: 300MG PER DAY
     Dates: start: 20081101, end: 20100301
  2. TENOFOVIR [Suspect]
     Indication: HIV INFECTION
     Dates: end: 20100301
  3. ABACAVIR [Suspect]
     Indication: HIV INFECTION
     Dates: end: 20100301
  4. RITONAVIR [Suspect]
     Indication: ANTIRETROVIRAL THERAPY
     Dates: end: 20100301

REACTIONS (3)
  - MALIGNANT HYPERTENSION [None]
  - HEADACHE [None]
  - BRAIN OEDEMA [None]
